FAERS Safety Report 9556186 (Version 1)
Quarter: 2013Q3

REPORT INFORMATION
  Report Type: Spontaneous
  Country: US (occurrence: US)
  Receive Date: 20130926
  Receipt Date: 20130926
  Transmission Date: 20140515
  Serious: No
  Sender: FDA-Public Use
  Company Number: US-UPSHER-SMITH LABORATORIES, INC.-13002758

PATIENT
  Age: 71 Year
  Sex: Female

DRUGS (7)
  1. FORTICAL [Suspect]
     Indication: OSTEOPOROSIS
     Dosage: 200 IU, QD
     Route: 045
     Dates: start: 201307
  2. DIOVAN                             /01319601/ [Concomitant]
     Indication: HYPERTENSION
     Dosage: UNK
  3. LIPITOR [Concomitant]
     Indication: ARTERIOSCLEROSIS
     Dosage: UNK
  4. AZELASTINE [Concomitant]
     Indication: RHINITIS ALLERGIC
     Dosage: UNK
  5. FLUTICASONE [Concomitant]
     Indication: RHINITIS ALLERGIC
     Dosage: UNK
  6. METFORMIN [Concomitant]
     Indication: GLUCOSE TOLERANCE IMPAIRED
     Dosage: UNK
  7. MULTIVITAMIN                       /01229101/ [Concomitant]
     Dosage: UNK

REACTIONS (1)
  - Nasal discomfort [Not Recovered/Not Resolved]
